FAERS Safety Report 13055012 (Version 2)
Quarter: 2017Q1

REPORT INFORMATION
  Report Type: Spontaneous
  Country: US (occurrence: US)
  Receive Date: 20161222
  Receipt Date: 20170112
  Transmission Date: 20170428
  Serious: Yes (Hospitalization)
  Sender: FDA-Public Use
  Company Number: US-VERTEX PHARMACEUTICALS-2016-007207

PATIENT
  Age: 24 Year
  Sex: Female

DRUGS (22)
  1. REMERON [Concomitant]
     Active Substance: MIRTAZAPINE
     Dosage: 1 DF, QD AT NIGHT
     Route: 048
     Dates: start: 20161220
  2. ZENPEP [Concomitant]
     Active Substance: PANCRELIPASE AMYLASE\PANCRELIPASE LIPASE\PANCRELIPASE PROTEASE
     Dosage: 5 CAPS WITH MEALS AND 4 WITH SNACKS
     Route: 048
  3. ZYRTEC [Concomitant]
     Active Substance: CETIRIZINE HYDROCHLORIDE
     Dosage: 10 MG, QD
     Route: 048
     Dates: start: 20160919
  4. LIDODERM [Concomitant]
     Active Substance: LIDOCAINE
     Dosage: 1 PATCH UPTO 12 HOURS
     Route: 061
  5. PROVENTIL [Concomitant]
     Active Substance: ALBUTEROL
     Dosage: 2.5 MG, TID
     Route: 055
     Dates: start: 20160919
  6. FLONASE [Concomitant]
     Active Substance: FLUTICASONE PROPIONATE
     Dosage: 2 SPRAYS IN EACH NOSTRIL
     Route: 045
     Dates: start: 20161005
  7. ADVIL [Concomitant]
     Active Substance: IBUPROFEN
     Indication: PAIN
     Dosage: 800 MG, QID
     Route: 048
     Dates: start: 20161130, end: 20161230
  8. MIRALAX [Concomitant]
     Active Substance: POLYETHYLENE GLYCOL 3350
     Dosage: 17 G, QD
     Route: 048
     Dates: start: 20161207
  9. LYRICA [Concomitant]
     Active Substance: PREGABALIN
     Dosage: 150 MG, TID
     Route: 048
     Dates: start: 20161220
  10. ENSURE [Concomitant]
     Active Substance: AMINO ACIDS\DEXTROSE\ELECTROLYTES NOS\SOYBEAN OIL\VITAMINS
  11. BACTRIM [Concomitant]
     Active Substance: SULFAMETHOXAZOLE\TRIMETHOPRIM
  12. SENOKOT [Concomitant]
     Active Substance: SENNOSIDES
     Dosage: 2 DF, BID
     Route: 048
     Dates: start: 20160919
  13. ALBUTEROL HFA [Concomitant]
     Active Substance: ALBUTEROL SULFATE
     Indication: WHEEZING
     Dosage: 2 PUFFS INTO LUNGS, QID
     Route: 055
     Dates: start: 20161220
  14. MARINOL [Concomitant]
     Active Substance: DRONABINOL
     Dosage: 10 MG, BID
     Route: 048
     Dates: start: 20161220
  15. TYLENOL [Concomitant]
     Active Substance: ACETAMINOPHEN
     Dosage: 2 DF, TID
     Route: 048
     Dates: start: 20161130, end: 20161230
  16. ZOFRAN [Concomitant]
     Active Substance: ONDANSETRON HYDROCHLORIDE
     Dosage: 4 MG, TID
     Route: 048
     Dates: start: 20150930
  17. ORKAMBI [Suspect]
     Active Substance: IVACAFTOR\LUMACAFTOR
     Indication: CYSTIC FIBROSIS
     Dosage: 400-250 MG, BID
     Route: 048
     Dates: start: 201509
  18. CYMBALTA [Concomitant]
     Active Substance: DULOXETINE HYDROCHLORIDE
     Dosage: 1 DF, QD
  19. CYMBALTA [Concomitant]
     Active Substance: DULOXETINE HYDROCHLORIDE
     Dosage: 2 DF, BID
     Dates: start: 20161213
  20. XOPENEX [Concomitant]
     Active Substance: LEVALBUTEROL HYDROCHLORIDE
     Indication: WHEEZING
     Dosage: 3 ML, QID
     Route: 055
     Dates: start: 20161102
  21. MULTIVITAMIN [Concomitant]
     Active Substance: VITAMINS
     Dosage: 1 DF, BID
     Route: 048
     Dates: start: 20161220
  22. PULMOZYME [Concomitant]
     Active Substance: DORNASE ALFA
     Dosage: 2.5 MG, BID
     Route: 055
     Dates: start: 20161207

REACTIONS (4)
  - Pneumonia [Recovering/Resolving]
  - Infective pulmonary exacerbation of cystic fibrosis [Recovered/Resolved]
  - Blood alkaline phosphatase increased [Unknown]
  - Fungal sepsis [Recovering/Resolving]

NARRATIVE: CASE EVENT DATE: 201611
